FAERS Safety Report 8339577-2 (Version None)
Quarter: 2012Q2

REPORT INFORMATION
  Report Type: 
  Country: None (occurrence: None)
  Receive Date: 20120507
  Receipt Date: 20120502
  Transmission Date: 20120825
  Serious: Yes (Hospitalization)
  Sender: FDA-Public Use
  Company Number: PHHY2012DE008655

PATIENT
  Sex: Female
  Weight: 69 kg

DRUGS (6)
  1. METOPROLOL SUCCINATE [Concomitant]
     Indication: HYPERTENSION
     Dosage: 1 DF, QD
     Route: 048
     Dates: start: 20050101
  2. ACETAMINOPHEN [Suspect]
     Indication: DYSMENORRHOEA
     Dosage: 3-4 TIMES PER MONTH
     Route: 048
     Dates: start: 19920101
  3. CETIRIZINE [Concomitant]
     Indication: HYPERSENSITIVITY
     Dosage: AS NEEDED
     Route: 048
     Dates: start: 20090326
  4. ESTRADERM [Suspect]
     Indication: HORMONE REPLACEMENT THERAPY
     Dosage: 1 PATCH EVERY 3 OR 4 DAYS
     Route: 062
     Dates: start: 19920101, end: 20120127
  5. CHLORMADINONE ACETATE TAB [Suspect]
     Indication: MENOPAUSAL SYMPTOMS
     Dosage: 1 DF, QD
     Route: 048
     Dates: start: 19920101, end: 20120127
  6. RAMIPRIL [Concomitant]
     Indication: HYPERTENSION
     Dosage: 1 DF, QD
     Route: 048
     Dates: start: 20050101

REACTIONS (12)
  - DECREASED APPETITE [None]
  - LIVER FUNCTION TEST ABNORMAL [None]
  - ASCITES [None]
  - HEPATIC CIRRHOSIS [None]
  - BLOOD IRON INCREASED [None]
  - CHROMATURIA [None]
  - OEDEMA PERIPHERAL [None]
  - PRURITUS [None]
  - NAUSEA [None]
  - FATIGUE [None]
  - JAUNDICE [None]
  - LIPIDS INCREASED [None]
